FAERS Safety Report 25577404 (Version 1)
Quarter: 2025Q3

REPORT INFORMATION
  Report Type: Spontaneous
  Country: US (occurrence: US)
  Receive Date: 20250718
  Receipt Date: 20250718
  Transmission Date: 20251021
  Serious: Yes (Life-Threatening, Hospitalization, Other)
  Sender: UNITED THERAPEUTICS
  Company Number: US-UNITED THERAPEUTICS-UNT-2025-024433

PATIENT
  Age: 49 Year
  Sex: Male

DRUGS (3)
  1. TYVASO [Suspect]
     Active Substance: TREPROSTINIL
     Indication: Pulmonary hypertension
  2. TYVASO [Suspect]
     Active Substance: TREPROSTINIL
     Indication: Pulmonary fibrosis
  3. OXYGEN [Concomitant]
     Active Substance: OXYGEN
     Indication: Acute respiratory failure

REACTIONS (4)
  - Cardiac arrest [Recovered/Resolved]
  - Bradycardia [Recovered/Resolved]
  - Post procedural complication [Unknown]
  - Therapy non-responder [Unknown]
